FAERS Safety Report 7824413-0 (Version None)
Quarter: 2011Q4

REPORT INFORMATION
  Report Type: 
  Country: None (occurrence: None)
  Receive Date: 20111019
  Receipt Date: 20111008
  Transmission Date: 20120403
  Serious: Yes (Other)
  Sender: FDA-Public Use
  Company Number: CA-JNJFOC-20111005993

PATIENT
  Sex: Male
  Weight: 64 kg

DRUGS (2)
  1. REMICADE [Suspect]
     Route: 042
     Dates: start: 20111008
  2. REMICADE [Suspect]
     Indication: CROHN'S DISEASE
     Route: 042
     Dates: start: 20100101

REACTIONS (1)
  - HAND FRACTURE [None]
